FAERS Safety Report 10789600 (Version 1)
Quarter: 2015Q1

REPORT INFORMATION
  Report Type: Spontaneous
  Country: US (occurrence: None)
  Receive Date: 20150211
  Receipt Date: 20150211
  Transmission Date: 20150721
  Serious: No
  Sender: FDA-Public Use
  Company Number: None

PATIENT
  Age: 38 Year
  Sex: Male

DRUGS (4)
  1. ITRACONAZOLE. [Concomitant]
     Active Substance: ITRACONAZOLE
  2. MYCAMINE [Concomitant]
     Active Substance: MICAFUNGIN SODIUM
  3. TASIGNA [Suspect]
     Active Substance: NILOTINIB
     Indication: CHRONIC MYELOID LEUKAEMIA
     Route: 048
     Dates: start: 20140815
  4. METHOCARBOMOL [Concomitant]
     Active Substance: METHOCARBAMOL

REACTIONS (2)
  - Systemic mycosis [None]
  - Pain [None]
